FAERS Safety Report 8600484-9 (Version None)
Quarter: 2012Q3

REPORT INFORMATION
  Report Type: 
  Country: None (occurrence: None)
  Receive Date: 20120808
  Receipt Date: 20120808
  Transmission Date: 20120928
  Serious: Yes (Other)
  Sender: FDA-Public Use
  Company Number: None

PATIENT
  Sex: Female

DRUGS (1)
  1. LATISSE [Suspect]
     Indication: EYELASH THICKENING
     Dosage: DAILY EXTERNAL
     Dates: start: 20090101, end: 20100101

REACTIONS (1)
  - INTRAOCULAR MELANOMA [None]
